FAERS Safety Report 9927495 (Version 2)
Quarter: 2014Q1

REPORT INFORMATION
  Report Type: Spontaneous
  Country: AT (occurrence: AT)
  Receive Date: 20140227
  Receipt Date: 20140311
  Transmission Date: 20141002
  Serious: Yes (Hospitalization, Other)
  Sender: FDA-Public Use
  Company Number: AT-AMGEN-AUTSP2014012641

PATIENT
  Age: 68 Year
  Sex: Female
  Weight: 61 kg

DRUGS (4)
  1. PROLIA [Suspect]
     Indication: OSTEOPOROSIS POSTMENOPAUSAL
     Dosage: 60 MG, Q6MO
     Route: 058
     Dates: start: 201201
  2. TRAMAL [Concomitant]
     Indication: PAIN
     Dosage: UNK UNK, AS NECESSARY
  3. CAL D VITA [Concomitant]
     Indication: BONE DISORDER
  4. OLEOVIT                            /00056001/ [Concomitant]
     Indication: BONE DISORDER

REACTIONS (3)
  - Impaired healing [Unknown]
  - Osteonecrosis of jaw [Not Recovered/Not Resolved]
  - Tooth extraction [Unknown]
